FAERS Safety Report 10574160 (Version 1)
Quarter: 2014Q4

REPORT INFORMATION
  Report Type: Spontaneous
  Country: DE (occurrence: DE)
  Receive Date: 20141110
  Receipt Date: 20141110
  Transmission Date: 20150529
  Serious: Yes (Other)
  Sender: FDA-Public Use
  Company Number: GXKR2014DE004117

PATIENT
  Age: 69 Year
  Sex: Male

DRUGS (1)
  1. GABAPENTIN 1A PHARMA [Suspect]
     Active Substance: GABAPENTIN
     Indication: NEURALGIA
     Dosage: UNK UKN, ONCE/SINGLE
     Route: 048

REACTIONS (3)
  - Urinary retention [Unknown]
  - Muscle spasms [Recovered/Resolved]
  - Musculoskeletal stiffness [Recovered/Resolved]
